FAERS Safety Report 15934131 (Version 3)
Quarter: 2019Q2

REPORT INFORMATION
  Report Type: Report from Study
  Country: US (occurrence: US)
  Receive Date: 20190207
  Receipt Date: 20190621
  Transmission Date: 20190711
  Serious: Yes (Other)
  Sender: FDA-Public Use
  Company Number: PHEH2019US005565

PATIENT
  Age: 50 Year
  Sex: Female

DRUGS (2)
  1. COSENTYX [Suspect]
     Active Substance: SECUKINUMAB
     Indication: PSORIASIS
     Dosage: 300 MG, QMO (Q4W)
     Route: 058
     Dates: start: 20180307
  2. BACTRIM [Suspect]
     Active Substance: SULFAMETHOXAZOLE\TRIMETHOPRIM
     Indication: URTICARIA
     Dosage: UNK FOR 5 DAYS
     Route: 065

REACTIONS (9)
  - Anxiety [Unknown]
  - Skin papilloma [Not Recovered/Not Resolved]
  - Abdominal adhesions [Unknown]
  - Bacterial infection [Unknown]
  - Incision site erythema [Not Recovered/Not Resolved]
  - Incision site pain [Unknown]
  - Urticaria [Unknown]
  - Incision site swelling [Unknown]
  - Incision site haemorrhage [Unknown]
